FAERS Safety Report 4518178-8 (Version None)
Quarter: 2004Q4

REPORT INFORMATION
  Report Type: 
  Country: None (occurrence: None)
  Receive Date: 20041130
  Receipt Date: 20041122
  Transmission Date: 20050328
  Serious: Yes (Hospitalization)
  Sender: FDA-Public Use
  Company Number: 163-20785-04100253

PATIENT
  Age: 81 Year
  Sex: Female

DRUGS (11)
  1. THALOMID [Suspect]
     Indication: MULTIPLE MYELOMA
     Dosage: 200 MG, DAILY, ORAL
     Route: 048
     Dates: start: 20040401, end: 20040811
  2. BACTRIM [Concomitant]
  3. DEXAMETHASONE [Concomitant]
  4. ZANTAC (RANITIDINDE HYDROCHLORIDE) [Concomitant]
  5. NYSTATIN [Concomitant]
  6. VALTREX [Concomitant]
  7. FOLATE (FOLATE SODIUM) [Concomitant]
  8. ALTACE [Concomitant]
  9. COUMADIN [Concomitant]
  10. EX-LAX (YELOW PHENOLPHTALEIN) [Concomitant]
  11. FIBERCON (POLYCARBOPHIL CALCIUM) [Concomitant]

REACTIONS (7)
  - AMNESIA [None]
  - FATIGUE [None]
  - HIP FRACTURE [None]
  - JOINT INJURY [None]
  - OEDEMA PERIPHERAL [None]
  - RENAL FAILURE [None]
  - VERTIGO [None]
